FAERS Safety Report 25421144 (Version 4)
Quarter: 2025Q3

REPORT INFORMATION
  Report Type: Spontaneous
  Country: US (occurrence: US)
  Receive Date: 20250611
  Receipt Date: 20250729
  Transmission Date: 20251021
  Serious: No
  Sender: BAUSCH AND LOMB
  Company Number: US-BAUSCH-BL-2025-007046

PATIENT
  Age: 74 Year
  Sex: Male

DRUGS (2)
  1. UCERIS [Suspect]
     Active Substance: BUDESONIDE
     Indication: Crohn^s disease
     Route: 054
     Dates: start: 202506
  2. UCERIS [Suspect]
     Active Substance: BUDESONIDE
     Indication: Product use in unapproved indication

REACTIONS (5)
  - Application site warmth [Unknown]
  - Product physical issue [Unknown]
  - Product delivery mechanism issue [Unknown]
  - Therapy interrupted [Unknown]
  - Product use in unapproved indication [Unknown]

NARRATIVE: CASE EVENT DATE: 20250601
